FAERS Safety Report 7971099-0 (Version None)
Quarter: 2011Q4

REPORT INFORMATION
  Report Type: 
  Country: None (occurrence: None)
  Receive Date: 20111212
  Receipt Date: 20111212
  Transmission Date: 20120403
  Serious: Yes (Life-Threatening, Other)
  Sender: FDA-Public Use
  Company Number: None

PATIENT
  Age: 46 Year
  Sex: Male
  Weight: 97.975 kg

DRUGS (15)
  1. ACTOS [Concomitant]
     Route: 048
  2. GLUCTROL [Concomitant]
     Route: 048
  3. HYDROCODONE BITARTRATE + ACETAMINOPHEN [Concomitant]
     Route: 048
  4. ALEVE LIQU-GEL [Concomitant]
     Route: 048
  5. PANTOPRAZOLE [Concomitant]
     Route: 048
  6. FLUTICASONE PROPIONATE [Concomitant]
     Route: 048
  7. ALBUTROL INHALER [Concomitant]
  8. HUMIRA [Suspect]
     Indication: ANKYLOSING SPONDYLITIS
     Dosage: 1 INJECTION
     Route: 030
     Dates: start: 20110301, end: 20111209
  9. ASPIRIN [Concomitant]
     Route: 048
  10. LISINOPRIL AND HYDROCHLOROTHIAZIDE [Concomitant]
     Route: 048
  11. GABAPENTIN [Concomitant]
     Route: 048
  12. LIPITOR [Concomitant]
     Route: 048
  13. ADVAIR HFA [Concomitant]
  14. NITROSTAT [Concomitant]
     Route: 060
  15. VOTAREN GEL [Concomitant]
     Route: 061

REACTIONS (6)
  - NEOPLASM MALIGNANT [None]
  - MUSCULOSKELETAL STIFFNESS [None]
  - HEART RATE IRREGULAR [None]
  - PAIN [None]
  - HYPERTENSION [None]
  - TUBERCULOSIS [None]
